FAERS Safety Report 6460827-1 (Version None)
Quarter: 2009Q4

REPORT INFORMATION
  Report Type: 
  Country: None (occurrence: None)
  Receive Date: 20091130
  Receipt Date: 20091116
  Transmission Date: 20100525
  Serious: Yes (Hospitalization)
  Sender: FDA-Public Use
  Company Number: FR-CELGENEUS-056-20785-09111284

PATIENT
  Sex: Male

DRUGS (10)
  1. THALIDOMIDE [Suspect]
     Route: 048
     Dates: start: 20061201, end: 20090601
  2. LYTOS [Suspect]
     Route: 048
     Dates: start: 20060401, end: 20080801
  3. DEXAMETHASONE TAB [Suspect]
     Route: 051
     Dates: start: 20080301, end: 20090501
  4. CORTANCYL [Suspect]
     Route: 048
     Dates: start: 20040101, end: 20061001
  5. BISOPROLOL FUMARATE [Suspect]
     Indication: ATRIAL FIBRILLATION
     Route: 048
     Dates: start: 20040101, end: 20090101
  6. ALKERAN [Suspect]
     Route: 051
     Dates: start: 20040101, end: 20070501
  7. PREVISCAN [Suspect]
     Indication: ATRIAL FIBRILLATION
     Route: 048
     Dates: start: 20040101, end: 20090101
  8. CORDARONE [Suspect]
     Indication: ATRIAL FIBRILLATION
     Route: 048
     Dates: start: 20040101, end: 20090101
  9. ZOMETA [Suspect]
     Route: 065
     Dates: start: 20040101, end: 20050601
  10. EPOETIN [Concomitant]
     Indication: DRUG USE FOR UNKNOWN INDICATION
     Route: 051
     Dates: start: 20040101, end: 20080801

REACTIONS (1)
  - OSTEONECROSIS [None]
